FAERS Safety Report 14686999 (Version 1)
Quarter: 2018Q1

REPORT INFORMATION
  Report Type: Spontaneous
  Country: US (occurrence: US)
  Receive Date: 20180327
  Receipt Date: 20180327
  Transmission Date: 20180509
  Serious: Yes (Other)
  Sender: FDA-Public Use
  Company Number: US-CONCORDIA PHARMACEUTICALS INC.-GSH201803-000992

PATIENT
  Age: 61 Year
  Sex: Female

DRUGS (13)
  1. PLAQUENIL [Suspect]
     Active Substance: HYDROXYCHLOROQUINE SULFATE
     Route: 048
     Dates: start: 20180122
  2. FOLIC ACID. [Concomitant]
     Active Substance: FOLIC ACID
     Route: 048
  3. METHOTREXATE. [Suspect]
     Active Substance: METHOTREXATE
     Dosage: LCC SHOT INTO HER STOMACH ONCE A WEEK
     Dates: start: 20180122
  4. METHOTREXATE. [Suspect]
     Active Substance: METHOTREXATE
     Dosage: LCC SHOT INTO HER STOMACH ONCE A WEEK
     Dates: start: 20180219
  5. NEXIUM [Concomitant]
     Active Substance: ESOMEPRAZOLE MAGNESIUM
     Indication: ABDOMINAL PAIN UPPER
     Dosage: 40MG CAPSULES TAKEN BY MOUTH 1-2 TIMES A DAY ?BEEN TAKING ONCE A DAY FOR 40 SOME YEARS, SINCE HER 20
     Route: 048
  6. PLAQUENIL [Suspect]
     Active Substance: HYDROXYCHLOROQUINE SULFATE
     Indication: RHEUMATOID ARTHRITIS
     Route: 048
     Dates: end: 20180108
  7. PLAQUENIL [Suspect]
     Active Substance: HYDROXYCHLOROQUINE SULFATE
     Route: 048
     Dates: start: 20180219
  8. XELJANZ [Suspect]
     Active Substance: TOFACITINIB CITRATE
     Dosage: 5MG TABLETS-1 TABLET TAKEN BY MOUTH IN THE MORNING, 1 TABLET TAKEN BY MOUTH AT NIGHT
     Route: 048
     Dates: start: 20180219
  9. COREG [Concomitant]
     Active Substance: CARVEDILOL
     Indication: MYOCARDIAL INFARCTION
     Dosage: MAYBE 100MG
     Route: 048
     Dates: start: 2008
  10. XELJANZ [Suspect]
     Active Substance: TOFACITINIB CITRATE
     Dosage: 5MG TABLETS-1 TABLET TAKEN BY MOUTH IN THE MORNING, 1 TABLET TAKEN BY MOUTH AT NIGHT
     Route: 048
     Dates: start: 20180122
  11. HYZAAR [Concomitant]
     Active Substance: HYDROCHLOROTHIAZIDE\LOSARTAN POTASSIUM
     Indication: MYOCARDIAL INFARCTION
     Dosage: LITTLE FOOTBALL LOOKING PILL ONCE BY MOUTH A DAY
     Route: 048
     Dates: start: 2008
  12. XELJANZ [Suspect]
     Active Substance: TOFACITINIB CITRATE
     Indication: RHEUMATOID ARTHRITIS
     Dosage: 5MG TABLETS-1 TABLET TAKEN BY MOUTH IN THE MORNING, 1 TABLET TAKEN BY MOUTH AT NIGHT
     Route: 048
     Dates: start: 201706, end: 20180108
  13. METHOTREXATE. [Suspect]
     Active Substance: METHOTREXATE
     Indication: RHEUMATOID ARTHRITIS
     Dosage: LCC SHOT INTO HER STOMACH ONCE A WEEK
     Dates: end: 20180108

REACTIONS (2)
  - Disease recurrence [Recovered/Resolved]
  - Pneumonia [Recovered/Resolved]

NARRATIVE: CASE EVENT DATE: 201801
